FAERS Safety Report 15552019 (Version 1)
Quarter: 2018Q4

REPORT INFORMATION
  Report Type: Spontaneous
  Country: US (occurrence: US)
  Receive Date: 20181025
  Receipt Date: 20181025
  Transmission Date: 20190205
  Serious: Yes (Hospitalization, Other)
  Sender: FDA-Public Use
  Company Number: US-PFIZER INC-2018427886

PATIENT
  Age: 43 Year
  Sex: Male
  Weight: 104.33 kg

DRUGS (1)
  1. EPLERENONE. [Suspect]
     Active Substance: EPLERENONE
     Indication: PRIMARY HYPERALDOSTERONISM
     Dosage: 25 MG, 2X/DAY
     Route: 048
     Dates: start: 2017

REACTIONS (8)
  - Hypertensive crisis [Unknown]
  - Myocardial infarction [Not Recovered/Not Resolved]
  - Hypertension [Unknown]
  - Appendicitis [Unknown]
  - Blood potassium decreased [Unknown]
  - Gallbladder disorder [Not Recovered/Not Resolved]
  - Malaise [Unknown]
  - Product use in unapproved indication [Unknown]

NARRATIVE: CASE EVENT DATE: 201704
